FAERS Safety Report 9909696 (Version 1)
Quarter: 2014Q1

REPORT INFORMATION
  Report Type: Spontaneous
  Country: US (occurrence: US)
  Receive Date: 20140219
  Receipt Date: 20140219
  Transmission Date: 20141002
  Serious: No
  Sender: FDA-Public Use
  Company Number: US-PFIZER INC-2014046590

PATIENT
  Age: 46 Year
  Sex: Female
  Weight: 50.79 kg

DRUGS (1)
  1. LYRICA [Suspect]
     Indication: FIBROMYALGIA
     Dosage: 75 MG, 2X/DAY
     Route: 048
     Dates: start: 2005

REACTIONS (2)
  - Paraesthesia [Unknown]
  - Somnolence [Recovered/Resolved]
